FAERS Safety Report 15415195 (Version 3)
Quarter: 2018Q4

REPORT INFORMATION
  Report Type: Spontaneous
  Country: US (occurrence: US)
  Receive Date: 20180921
  Receipt Date: 20181002
  Transmission Date: 20190204
  Serious: No
  Sender: FDA-Public Use
  Company Number: US-ACTELION-A-NJ2018-179000

PATIENT
  Age: 50 Year
  Sex: Female

DRUGS (2)
  1. OPSUMIT [Suspect]
     Active Substance: MACITENTAN
     Indication: PULMONARY HYPERTENSION
     Dosage: 10 MG, UNK
     Route: 048
     Dates: start: 201808, end: 20180904
  2. ADEMPAS [Concomitant]
     Active Substance: RIOCIGUAT
     Dosage: 2.5 MG, TID
     Route: 048
     Dates: start: 20180307

REACTIONS (4)
  - Nausea [Unknown]
  - Vomiting [Unknown]
  - Oropharyngeal pain [Unknown]
  - Headache [Unknown]
